FAERS Safety Report 12190555 (Version 4)
Quarter: 2016Q2

REPORT INFORMATION
  Report Type: Report from Study
  Country: CN (occurrence: CN)
  Receive Date: 20160318
  Receipt Date: 20160627
  Transmission Date: 20160815
  Serious: Yes (Hospitalization)
  Sender: FDA-Public Use
  Company Number: CN-ROCHE-1726047

PATIENT
  Age: 66 Year
  Sex: Male
  Weight: 58 kg

DRUGS (30)
  1. TRASTUZUMAB [Suspect]
     Active Substance: TRASTUZUMAB
     Indication: HER-2 POSITIVE GASTRIC CANCER
     Dosage: LOADING DOSE
     Route: 042
     Dates: start: 20151105, end: 20151105
  2. ENTERAL NUTRITION [Concomitant]
     Active Substance: DIETARY SUPPLEMENT
     Dosage: EXTRA-NUTRITION
     Route: 048
     Dates: start: 20160205, end: 20160206
  3. PERTUZUMAB [Suspect]
     Active Substance: PERTUZUMAB
     Indication: HER-2 POSITIVE GASTRIC CANCER
     Dosage: MOST RECENT DOSE PRIOR TO AE: 29/FEB/2016
     Route: 042
     Dates: start: 20151105
  4. ESOMEPRAZOLE SODIUM. [Concomitant]
     Active Substance: ESOMEPRAZOLE SODIUM
     Dosage: PREVENTIVE ANTI-NAUSEA
     Route: 042
     Dates: start: 20160202, end: 20160205
  5. PALONOSETRON HYDROCHLORIDE. [Concomitant]
     Active Substance: PALONOSETRON HYDROCHLORIDE
     Dosage: PREVENTIVE ANTI-NAUSEA
     Route: 042
     Dates: start: 20160203, end: 20160203
  6. APREPITANT. [Concomitant]
     Active Substance: APREPITANT
     Indication: VOMITING
     Dosage: 1 CAPSULE
     Route: 048
     Dates: start: 20160203, end: 20160205
  7. INSULIN [Concomitant]
     Active Substance: INSULIN NOS
     Route: 042
     Dates: start: 20160301, end: 20160302
  8. MONTMORILLONITE [Concomitant]
     Active Substance: MONTMORILLONITE
     Indication: DIARRHOEA
     Route: 048
     Dates: start: 20151203
  9. IRON SUCROSE [Concomitant]
     Active Substance: IRON SUCROSE
     Route: 042
     Dates: start: 20160229, end: 20160302
  10. MANNITOL. [Concomitant]
     Active Substance: MANNITOL
     Route: 042
     Dates: start: 20160229, end: 20160229
  11. CAPECITABINE. [Suspect]
     Active Substance: CAPECITABINE
     Indication: HER-2 POSITIVE GASTRIC CANCER
     Dosage: MOST RECENT DOSE OF CAPACETABINE PRIOR TO AE 03/MAR/2016, 1300 MG
     Route: 048
     Dates: start: 20151105
  12. POTASSIUM CHLORIDE. [Concomitant]
     Active Substance: POTASSIUM CHLORIDE
     Route: 042
     Dates: start: 20160229, end: 20160302
  13. INSULIN [Concomitant]
     Active Substance: INSULIN NOS
     Route: 042
     Dates: start: 20160204, end: 20160205
  14. INSULIN [Concomitant]
     Active Substance: INSULIN NOS
     Route: 042
     Dates: start: 20160229, end: 20160229
  15. ENTERAL NUTRITION [Concomitant]
     Active Substance: DIETARY SUPPLEMENT
     Route: 048
     Dates: start: 20160302, end: 20160302
  16. MUCOPOLYSACCHARIDE POLYSULPHATE [Concomitant]
     Route: 062
     Dates: start: 20160229, end: 20160229
  17. APREPITANT. [Concomitant]
     Active Substance: APREPITANT
     Dosage: 1 CAPSULE
     Route: 048
     Dates: start: 20160229, end: 20160302
  18. FUROSEMIDE. [Concomitant]
     Active Substance: FUROSEMIDE
     Route: 042
     Dates: start: 20160229, end: 20160302
  19. GAN MAO QING RE KE LI [Concomitant]
     Indication: PYREXIA
     Route: 048
     Dates: start: 20160204, end: 20160206
  20. GAN MAO QING RE KE LI [Concomitant]
     Route: 048
     Dates: start: 20160302, end: 20160302
  21. POTASSIUM CHLORIDE. [Concomitant]
     Active Substance: POTASSIUM CHLORIDE
     Route: 042
     Dates: start: 20160225, end: 20160225
  22. CISPLATIN. [Suspect]
     Active Substance: CISPLATIN
     Indication: HER-2 POSITIVE GASTRIC CANCER
     Dosage: LAST DOSE PRIOR TO SAE 29/FEB/2016, 102.6 MG
     Route: 042
     Dates: start: 20151105
  23. POTASSIUM CHLORIDE. [Concomitant]
     Active Substance: POTASSIUM CHLORIDE
     Dosage: POTASSIUM SUPPLEMENT
     Route: 042
     Dates: start: 20160202, end: 20160205
  24. IRON SUCROSE [Concomitant]
     Active Substance: IRON SUCROSE
     Dosage: SUPPLY IRON
     Route: 042
     Dates: start: 20160202, end: 20160204
  25. PALONOSETRON HYDROCHLORIDE. [Concomitant]
     Active Substance: PALONOSETRON HYDROCHLORIDE
     Dosage: PREVENTIVE ANTI-NAUSEA
     Route: 042
     Dates: start: 20160229, end: 20160229
  26. TRASTUZUMAB [Suspect]
     Active Substance: TRASTUZUMAB
     Dosage: MAINTAINENCE DOSE?LAST DOSE PRIOR TO SAE:29/FEB/2016 : 348 MG
     Route: 042
  27. ESOMEPRAZOLE SODIUM. [Concomitant]
     Active Substance: ESOMEPRAZOLE SODIUM
     Route: 042
     Dates: start: 20160229, end: 20160302
  28. INSULIN [Concomitant]
     Active Substance: INSULIN NOS
     Dosage: REGULATE BLOOD SUGAR LEVEL
     Route: 042
     Dates: start: 20160203, end: 20160203
  29. FUROSEMIDE. [Concomitant]
     Active Substance: FUROSEMIDE
     Indication: POLYURIA
     Route: 042
     Dates: start: 20160203, end: 20160205
  30. MANNITOL. [Concomitant]
     Active Substance: MANNITOL
     Indication: POLYURIA
     Route: 042
     Dates: start: 20160203, end: 20160203

REACTIONS (1)
  - Upper gastrointestinal haemorrhage [Recovered/Resolved]

NARRATIVE: CASE EVENT DATE: 20160304
